FAERS Safety Report 15798927 (Version 1)
Quarter: 2019Q1

REPORT INFORMATION
  Report Type: Spontaneous
  Country: US (occurrence: US)
  Receive Date: 20190108
  Receipt Date: 20190108
  Transmission Date: 20190417
  Serious: Yes (Hospitalization)
  Sender: FDA-Public Use
  Company Number: None

PATIENT
  Sex: Female

DRUGS (13)
  1. FORTEO [Suspect]
     Active Substance: TERIPARATIDE
     Indication: OSTEOPOROSIS
     Route: 058
     Dates: start: 20170919
  2. FISH OIL [Concomitant]
     Active Substance: FISH OIL
  3. ASPIRIN-81 [Concomitant]
  4. WAL-ZYR (CETIRIZINE HYDROCHLORIDE) [Concomitant]
     Active Substance: CETIRIZINE HYDROCHLORIDE
  5. CRUSH VIT C [Concomitant]
  6. CARVEDILOL. [Concomitant]
     Active Substance: CARVEDILOL
  7. CA CIT/VIT D [Concomitant]
  8. NEXIUM [Concomitant]
     Active Substance: ESOMEPRAZOLE MAGNESIUM
  9. MULTIVITAMIN [Concomitant]
     Active Substance: VITAMINS
  10. LYRICA [Concomitant]
     Active Substance: PREGABALIN
  11. ARTHROTEC [Concomitant]
     Active Substance: DICLOFENAC SODIUM\MISOPROSTOL
  12. SYNTHROID [Concomitant]
     Active Substance: LEVOTHYROXINE SODIUM
  13. TRAMADOL HCL [Concomitant]
     Active Substance: TRAMADOL HYDROCHLORIDE

REACTIONS (1)
  - Pneumonia [None]
